FAERS Safety Report 16809913 (Version 1)
Quarter: 2019Q3

REPORT INFORMATION
  Report Type: Spontaneous
  Country: US (occurrence: US)
  Receive Date: 20190725
  Receipt Date: 20190725
  Transmission Date: 20191005
  Serious: Yes (Other)
  Sender: FDA-Public Use
  Company Number: None

PATIENT
  Age: 63 Year
  Sex: Female
  Weight: 97.52 kg

DRUGS (2)
  1. POLYMYXIN B OPHTHALMIC AND TRIMETHOPRIM [Suspect]
     Active Substance: POLYMYXIN B SULFATE\TRIMETHOPRIM
     Dates: start: 201812
  2. PURALUBE [Suspect]
     Active Substance: MINERAL OIL\PETROLATUM
     Indication: POSTOPERATIVE CARE
     Dates: start: 201812, end: 201907

REACTIONS (2)
  - Corneal disorder [None]
  - Procedural pain [None]

NARRATIVE: CASE EVENT DATE: 20190201
